FAERS Safety Report 6008063-7 (Version None)
Quarter: 2008Q4

REPORT INFORMATION
  Report Type: 
  Country: None (occurrence: None)
  Receive Date: 20081217
  Receipt Date: 20080814
  Transmission Date: 20090506
  Serious: No
  Sender: FDA-Public Use
  Company Number: US-ASTRAZENECA-2008UW16477

PATIENT
  Sex: Female
  Weight: 53.5 kg

DRUGS (3)
  1. CRESTOR [Suspect]
     Indication: HYPERCHOLESTEROLAEMIA
     Route: 048
     Dates: start: 20050101
  2. NEXIUM [Concomitant]
     Route: 048
  3. BONIVA [Concomitant]

REACTIONS (4)
  - ANXIETY [None]
  - STRESS [None]
  - ULCER [None]
  - WEIGHT DECREASED [None]
